FAERS Safety Report 23373317 (Version 2)
Quarter: 2024Q1

REPORT INFORMATION
  Report Type: Spontaneous
  Country: GB (occurrence: GB)
  Receive Date: 20240105
  Receipt Date: 20240118
  Transmission Date: 20240409
  Serious: Yes (Hospitalization)
  Sender: FDA-Public Use
  Company Number: GB-MYLANLABS-2023M1117223

PATIENT
  Age: 30 Year
  Sex: Male
  Weight: 94.8 kg

DRUGS (23)
  1. CETIRIZINE [Suspect]
     Active Substance: CETIRIZINE HYDROCHLORIDE
     Indication: Product used for unknown indication
     Dosage: 10 GRAM, PRN
     Route: 048
     Dates: start: 20230919
  2. CLOZARIL [Suspect]
     Active Substance: CLOZAPINE
     Dosage: UNK, BID
     Route: 065
  3. CLOZARIL [Suspect]
     Active Substance: CLOZAPINE
     Dosage: 100 MG, QD
     Route: 048
     Dates: start: 20231003
  4. CLOZARIL [Suspect]
     Active Substance: CLOZAPINE
     Dosage: 100 MILLIGRAM (AM), 150 MILLIGRAM (PM), ONCE DAILY (QD)
     Route: 048
     Dates: start: 20231003
  5. CLOZARIL [Suspect]
     Active Substance: CLOZAPINE
     Dosage: 100 MILLIGRAM, QD
     Route: 048
     Dates: start: 20231027
  6. CLOZARIL [Suspect]
     Active Substance: CLOZAPINE
     Dosage: 150 MILLIGRAM, QD
     Route: 048
     Dates: start: 20231027
  7. CLOZARIL [Suspect]
     Active Substance: CLOZAPINE
     Indication: Schizophrenia
     Dosage: UNK
     Route: 048
     Dates: start: 20231013
  8. CLOZARIL [Suspect]
     Active Substance: CLOZAPINE
     Dosage: UNK, BID
     Route: 065
  9. LORAZEPAM [Suspect]
     Active Substance: LORAZEPAM
     Indication: Product used for unknown indication
     Dosage: UNK
     Route: 048
     Dates: start: 20230727
  10. MIRTAZAPINE [Suspect]
     Active Substance: MIRTAZAPINE
     Indication: Product used for unknown indication
     Dosage: 30 MILLIGRAM, ONCE DAILY (QD) (ON)
     Route: 048
     Dates: start: 20230615
  11. ACETAMINOPHEN [Suspect]
     Active Substance: ACETAMINOPHEN
     Indication: Product used for unknown indication
     Dosage: 1 GRAM, PRN
     Route: 048
     Dates: start: 20230829
  12. PROMETHAZINE HYDROCHLORIDE [Suspect]
     Active Substance: PROMETHAZINE HYDROCHLORIDE
     Indication: Product used for unknown indication
     Dosage: UNK, PRN
     Route: 048
     Dates: start: 20230727
  13. PROCYCLIDINE [Suspect]
     Active Substance: PROCYCLIDINE
     Indication: Product used for unknown indication
     Dosage: 5 MILLIGRAM, BID
     Route: 048
     Dates: start: 20231002
  14. POTASSIUM BICARBONATE\SODIUM ALGINATE [Concomitant]
     Active Substance: POTASSIUM BICARBONATE\SODIUM ALGINATE
     Indication: Product used for unknown indication
     Dosage: UNK (MINT CHEWABLE TABLET)
     Route: 048
  15. POTASSIUM BICARBONATE\SODIUM ALGINATE [Concomitant]
     Active Substance: POTASSIUM BICARBONATE\SODIUM ALGINATE
     Dosage: UNK (MINT CHEWABLE TABLET)
     Route: 048
  16. POTASSIUM BICARBONATE\SODIUM ALGINATE [Concomitant]
     Active Substance: POTASSIUM BICARBONATE\SODIUM ALGINATE
     Dosage: UNK (MINT CHEWABLE TABLET)
     Route: 048
  17. MIRTAZAPINE [Concomitant]
     Active Substance: MIRTAZAPINE
     Indication: Product used for unknown indication
     Dosage: 30 MILLIGRAM, QD (ON)
     Route: 048
     Dates: start: 20230615
  18. MOVICOL [Concomitant]
     Active Substance: POLYETHYLENE GLYCOL 3350\POTASSIUM CHLORIDE\SODIUM BICARBONATE\SODIUM CHLORIDE
     Indication: Constipation
     Dosage: UNK (SACHETS)
     Route: 048
  19. MOVICOL [Concomitant]
     Active Substance: POLYETHYLENE GLYCOL 3350\POTASSIUM CHLORIDE\SODIUM BICARBONATE\SODIUM CHLORIDE
     Indication: Product used for unknown indication
     Dosage: UNK (SACHETS)
     Route: 048
  20. MOVICOL [Concomitant]
     Active Substance: POLYETHYLENE GLYCOL 3350\POTASSIUM CHLORIDE\SODIUM BICARBONATE\SODIUM CHLORIDE
     Dosage: UNK (SACHETS)
     Route: 048
  21. Strepsils [Concomitant]
     Indication: Product used for unknown indication
     Dosage: UNK
     Route: 065
  22. Strepsils [Concomitant]
     Dosage: UNK
     Route: 065
  23. Strepsils [Concomitant]
     Dosage: UNK
     Route: 065

REACTIONS (4)
  - Hospitalisation [Unknown]
  - Sedation complication [Unknown]
  - Off label use [Unknown]
  - Sedation [Recovered/Resolved]

NARRATIVE: CASE EVENT DATE: 20230101
